FAERS Safety Report 23485227 (Version 1)
Quarter: 2024Q1

REPORT INFORMATION
  Report Type: Spontaneous
  Country: ES (occurrence: ES)
  Receive Date: 20240206
  Receipt Date: 20240206
  Transmission Date: 20240410
  Serious: Yes (Other)
  Sender: FDA-Public Use
  Company Number: ES-SA-2024SA036630

PATIENT
  Age: 50 Year
  Sex: Male

DRUGS (2)
  1. DUPILUMAB [Suspect]
     Active Substance: DUPILUMAB
     Indication: Dermatitis atopic
     Dosage: UNK
  2. SIMVASTATIN [Concomitant]
     Active Substance: SIMVASTATIN
     Indication: Hypercholesterolaemia
     Dosage: UNK

REACTIONS (10)
  - Ocular surface disease [Recovered/Resolved]
  - Ocular hyperaemia [Recovered/Resolved]
  - Eye pain [Recovered/Resolved]
  - Vision blurred [Recovered/Resolved]
  - Keratic precipitates [Recovered/Resolved]
  - Conjunctival hyperaemia [Recovered/Resolved]
  - Corneal graft rejection [Unknown]
  - Alopecia universalis [Recovered/Resolved]
  - Alopecia areata [Recovered/Resolved]
  - Alopecia [Unknown]
